FAERS Safety Report 5064960-0 (Version None)
Quarter: 2006Q3

REPORT INFORMATION
  Report Type: 
  Country: None (occurrence: None)
  Receive Date: 20060726
  Receipt Date: 20060706
  Transmission Date: 20061208
  Serious: Yes (Hospitalization)
  Sender: FDA-Public Use
  Company Number: US200606005569

PATIENT
  Age: 75 Year
  Sex: Female

DRUGS (2)
  1. FORTEO [Suspect]
     Dosage: 20 UG
     Dates: start: 20050901
  2. FORTEO PEN (FORTEO PEN) [Concomitant]

REACTIONS (3)
  - FALL [None]
  - OSTEOPOROSIS [None]
  - PATHOLOGICAL FRACTURE [None]
